FAERS Safety Report 23798014 (Version 1)
Quarter: 2024Q2

REPORT INFORMATION
  Report Type: Spontaneous
  Country: AU (occurrence: AU)
  Receive Date: 20240430
  Receipt Date: 20240430
  Transmission Date: 20240716
  Serious: Yes (Other)
  Sender: FDA-Public Use
  Company Number: AU-SAMSUNG BIOEPIS-SB-2024-12585

PATIENT
  Sex: Male

DRUGS (1)
  1. RENFLEXIS [Suspect]
     Active Substance: INFLIXIMAB-ABDA
     Indication: Product used for unknown indication
     Route: 065

REACTIONS (10)
  - Ocular hypertension [Recovered/Resolved]
  - Flushing [Recovered/Resolved]
  - Lacrimation increased [Recovered/Resolved]
  - Headache [Recovered/Resolved]
  - Nausea [Recovered/Resolved]
  - Cold sweat [Recovered/Resolved]
  - Dyspnoea [Recovered/Resolved]
  - Blood pressure decreased [Recovered/Resolved]
  - Hyperhidrosis [Recovered/Resolved]
  - Product substitution issue [Unknown]
